FAERS Safety Report 9967403 (Version 1)
Quarter: 2014Q1

REPORT INFORMATION
  Report Type: Report from Study
  Country: US (occurrence: US)
  Receive Date: 20140305
  Receipt Date: 20140305
  Transmission Date: 20141002
  Serious: No
  Sender: FDA-Public Use
  Company Number: US-ABBVIE-13P-163-1138421-00

PATIENT
  Sex: Female

DRUGS (9)
  1. HUMIRA [Suspect]
     Indication: PSORIATIC ARTHROPATHY
     Dates: start: 20130517
  2. CITALOPRAM [Concomitant]
     Indication: DEPRESSION
     Dosage: 40 MG DAILY
  3. SYNTHROID [Concomitant]
     Indication: HYPOTHYROIDISM
     Dosage: 200 MG DAILY
  4. CYTOMEL [Concomitant]
     Indication: HYPOTHYROIDISM
  5. MEDROXYPROGESTERONE [Concomitant]
     Indication: HORMONE REPLACEMENT THERAPY
     Dosage: 2.5 MG DAILY THE LAST 10 DAYS OF MONTHLY CYCLE
  6. ESTRADIOL [Concomitant]
     Indication: HORMONE REPLACEMENT THERAPY
     Dosage: THE FIRST 20 DAYS OF MONTHLY CYCLE
  7. PROPRANOLOL [Concomitant]
     Indication: HYPERTENSION
     Dosage: 20 MG DAILY
  8. OXYCODONE [Concomitant]
     Indication: PAIN
  9. TRAMADOL [Concomitant]
     Indication: PAIN
     Dosage: UP TO 8 TABLETS DAILY AS NEEDED

REACTIONS (3)
  - Dysmenorrhoea [Not Recovered/Not Resolved]
  - Back pain [Not Recovered/Not Resolved]
  - Muscle spasms [Not Recovered/Not Resolved]
